FAERS Safety Report 8448946-1 (Version None)
Quarter: 2012Q2

REPORT INFORMATION
  Report Type: 
  Country: None (occurrence: None)
  Receive Date: 20120619
  Receipt Date: 20120614
  Transmission Date: 20120825
  Serious: Yes (Hospitalization)
  Sender: FDA-Public Use
  Company Number: TW-GLAXOSMITHKLINE-B0808907A

PATIENT
  Sex: Female
  Weight: 67.8 kg

DRUGS (5)
  1. AVANDIA [Suspect]
     Indication: DIABETES MELLITUS
     Dosage: 1G TWICE PER DAY
     Route: 065
  2. POLYTAR [Concomitant]
     Indication: PRODUCT USED FOR UNKNOWN INDICATION
     Route: 065
  3. LONGIFENE [Concomitant]
     Route: 065
  4. GASCON [Concomitant]
     Route: 065
  5. DONISON [Concomitant]
     Route: 065

REACTIONS (1)
  - ADVERSE EVENT [None]
